FAERS Safety Report 7762865-5 (Version None)
Quarter: 2011Q3

REPORT INFORMATION
  Report Type: 
  Country: None (occurrence: None)
  Receive Date: 20110825
  Receipt Date: 20110811
  Transmission Date: 20111222
  Serious: No
  Sender: FDA-Public Use
  Company Number: 331107

PATIENT
  Age: 63 Year
  Sex: Female

DRUGS (1)
  1. VICTOZA [Suspect]
     Indication: TYPE 2 DIABETES MELLITUS
     Dosage: 0.6MG, QD, SUBCUTANEOUS ; REGIMEN 2 1.2 MG, QD, SUBCUTANEOUS ; REGIMEN #3 0.6 MG, QD, SUBCUTANEOUS
     Route: 058

REACTIONS (4)
  - VOMITING [None]
  - COLD SWEAT [None]
  - BEDRIDDEN [None]
  - TACHYCARDIA [None]
